FAERS Safety Report 6056278-4 (Version None)
Quarter: 2009Q1

REPORT INFORMATION
  Report Type: 
  Country: None (occurrence: None)
  Receive Date: 20090126
  Receipt Date: 20090126
  Transmission Date: 20090719
  Serious: Yes (Other)
  Sender: FDA-Public Use
  Company Number: None

PATIENT
  Age: 4 Year
  Sex: Female
  Weight: 14.5151 kg

DRUGS (8)
  1. AUGMENTIN '400' [Suspect]
     Indication: EAR INFECTION
     Dosage: SEE IMAGE
     Route: 048
     Dates: start: 20090102
  2. AUGMENTIN '400' [Suspect]
     Indication: SINUSITIS
     Dosage: SEE IMAGE
     Route: 048
     Dates: start: 20090102
  3. AUGMENTIN '400' [Suspect]
     Indication: EAR INFECTION
     Dosage: SEE IMAGE
     Route: 048
     Dates: start: 20090103
  4. AUGMENTIN '400' [Suspect]
     Indication: SINUSITIS
     Dosage: SEE IMAGE
     Route: 048
     Dates: start: 20090103
  5. AUGMENTIN '400' [Suspect]
     Indication: EAR INFECTION
     Dosage: SEE IMAGE
     Route: 048
     Dates: start: 20090104
  6. AUGMENTIN '400' [Suspect]
     Indication: SINUSITIS
     Dosage: SEE IMAGE
     Route: 048
     Dates: start: 20090104
  7. AUGMENTIN '400' [Suspect]
     Indication: EAR INFECTION
     Dosage: SEE IMAGE
     Route: 048
     Dates: start: 20090105
  8. AUGMENTIN '400' [Suspect]
     Indication: SINUSITIS
     Dosage: SEE IMAGE
     Route: 048
     Dates: start: 20090105

REACTIONS (3)
  - DIARRHOEA [None]
  - SIMILAR REACTION ON PREVIOUS EXPOSURE TO DRUG [None]
  - VOMITING [None]
